FAERS Safety Report 16002435 (Version 2)
Quarter: 2019Q3

REPORT INFORMATION
  Report Type: Report from Study
  Country: None (occurrence: AT)
  Receive Date: 20190225
  Receipt Date: 20190811
  Transmission Date: 20191004
  Serious: Yes (Hospitalization)
  Sender: FDA-Public Use
  Company Number: AT-ABBVIE-19K-009-2673772-00

PATIENT
  Age: 57 Year
  Sex: Female

DRUGS (2)
  1. HUMIRA [Suspect]
     Active Substance: ADALIMUMAB
     Indication: ANKYLOSING SPONDYLITIS
     Route: 058
     Dates: start: 20150409
  2. IBANDRON [Concomitant]
     Indication: PRODUCT USED FOR UNKNOWN INDICATION

REACTIONS (8)
  - Radial nerve palsy [Not Recovered/Not Resolved]
  - Rash pustular [Recovering/Resolving]
  - Fall [Recovering/Resolving]
  - Upper limb fracture [Not Recovered/Not Resolved]
  - Upper limb fracture [Recovering/Resolving]
  - Dermatitis contact [Recovering/Resolving]
  - Fall [Not Recovered/Not Resolved]
  - Wrist fracture [Recovering/Resolving]

NARRATIVE: CASE EVENT DATE: 20181225
